FAERS Safety Report 10215856 (Version 2)
Quarter: 2014Q2

REPORT INFORMATION
  Report Type: Report from Study
  Country: US (occurrence: US)
  Receive Date: 20140604
  Receipt Date: 20140604
  Transmission Date: 20141212
  Serious: Yes (Hospitalization, Other)
  Sender: FDA-Public Use
  Company Number: US-ROCHE-1379388

PATIENT
  Age: 55 Year
  Sex: Female

DRUGS (10)
  1. CELLCEPT [Suspect]
     Indication: URTICARIA
     Route: 048
     Dates: start: 200901, end: 20090203
  2. XOLAIR [Suspect]
     Indication: URTICARIA
     Route: 065
     Dates: start: 20101119
  3. XOLAIR [Suspect]
     Route: 065
  4. ALLEGRA [Concomitant]
     Route: 048
  5. PREDNISONE [Concomitant]
  6. ACTONEL [Concomitant]
     Route: 065
  7. KETOTIFEN [Concomitant]
  8. DOXEPIN [Concomitant]
     Route: 048
  9. XYZAL [Concomitant]
     Route: 048
  10. COLCHICINE [Concomitant]

REACTIONS (3)
  - Clostridium difficile infection [Recovered/Resolved]
  - Intestinal dilatation [Unknown]
  - Osteonecrosis [Unknown]
